FAERS Safety Report 12492216 (Version 1)
Quarter: 2016Q2

REPORT INFORMATION
  Report Type: Spontaneous
  Country: US (occurrence: None)
  Receive Date: 20160622
  Receipt Date: 20160622
  Transmission Date: 20160815
  Serious: Yes (Hospitalization)
  Sender: FDA-Public Use
  Company Number: None

PATIENT
  Age: 63 Year
  Sex: Male
  Weight: 104.3 kg

DRUGS (1)
  1. BUPRENORPHINE/NALOXONE [Suspect]
     Active Substance: BUPRENORPHINE\NALOXONE
     Indication: DEPRESSION
     Route: 048
     Dates: start: 20160404, end: 20160405

REACTIONS (7)
  - Dizziness [None]
  - Depressed mood [None]
  - Off label use [None]
  - Somnolence [None]
  - Hypoxia [None]
  - Fatigue [None]
  - Sedation [None]

NARRATIVE: CASE EVENT DATE: 20160405
